FAERS Safety Report 5599712-6 (Version None)
Quarter: 2008Q1

REPORT INFORMATION
  Report Type: 
  Country: None (occurrence: None)
  Receive Date: 20080123
  Receipt Date: 20080117
  Transmission Date: 20080703
  Serious: Yes (Other)
  Sender: FDA-Public Use
  Company Number: CA-JNJFOC-20071005263

PATIENT
  Sex: Male
  Weight: 74 kg

DRUGS (22)
  1. REMICADE [Suspect]
     Route: 042
  2. REMICADE [Suspect]
     Route: 042
  3. REMICADE [Suspect]
     Route: 042
  4. REMICADE [Suspect]
     Route: 042
  5. REMICADE [Suspect]
     Route: 042
  6. REMICADE [Suspect]
     Route: 042
  7. REMICADE [Suspect]
     Route: 042
  8. REMICADE [Suspect]
     Indication: ANKYLOSING SPONDYLITIS
     Route: 042
  9. APO-PEN-VK [Concomitant]
  10. APO-QUINIDINE [Concomitant]
  11. ADVAIR DISKUS 100/50 [Concomitant]
     Route: 055
  12. ADVAIR DISKUS 100/50 [Concomitant]
     Route: 055
  13. ACETAMINOPHEN [Concomitant]
  14. PANTOLOC [Concomitant]
  15. VITAMIN B6 [Concomitant]
  16. PMS-ISONIAZID [Concomitant]
  17. CIALIS [Concomitant]
  18. CELEBREX [Concomitant]
  19. PHOSPHATE [Concomitant]
  20. NOVODOCUSATE [Concomitant]
  21. GEN-CLONAZEPAM [Concomitant]
  22. GEN-GABAPENTIN [Concomitant]

REACTIONS (1)
  - SKIN LESION [None]
